FAERS Safety Report 24584271 (Version 1)
Quarter: 2024Q4

REPORT INFORMATION
  Report Type: Report from Study
  Country: US (occurrence: US)
  Receive Date: 20241106
  Receipt Date: 20241106
  Transmission Date: 20250115
  Serious: Yes (Other)
  Sender: ASTELLAS
  Company Number: US-ASTELLAS-2024-AER-016078

PATIENT
  Age: 53 Year
  Sex: Male
  Weight: 83.46 kg

DRUGS (1)
  1. ENZALUTAMIDE [Suspect]
     Active Substance: ENZALUTAMIDE
     Indication: Product used for unknown indication
     Route: 048

REACTIONS (4)
  - Hypotension [Unknown]
  - Myalgia [Unknown]
  - Arthralgia [Unknown]
  - Exercise tolerance decreased [Unknown]
